FAERS Safety Report 8511243-X (Version None)
Quarter: 2012Q2

REPORT INFORMATION
  Report Type: 
  Country: None (occurrence: None)
  Receive Date: 20120629
  Receipt Date: 20120614
  Transmission Date: 20120825
  Serious: Yes (Hospitalization)
  Sender: FDA-Public Use
  Company Number: 2012SP031845

PATIENT
  Age: 22 Year
  Sex: Female

DRUGS (2)
  1. AMOXICILLIN [Suspect]
     Indication: URINARY TRACT INFECTION
     Dosage: ;PO
     Route: 048
     Dates: start: 20120319, end: 20120324
  2. DESOGESTREL AND ETHINYL ESTRADIOL [Suspect]
     Indication: CONTRACEPTION
     Dosage: ;PO
     Route: 048
     Dates: start: 20120305, end: 20120326

REACTIONS (8)
  - ASTHENIA [None]
  - DECREASED APPETITE [None]
  - URINARY TRACT INFECTION [None]
  - THROMBOCYTOPENIA [None]
  - DRUG INTOLERANCE [None]
  - HAEMOLYTIC URAEMIC SYNDROME [None]
  - RENAL FAILURE ACUTE [None]
  - ANAEMIA [None]
